FAERS Safety Report 9162740 (Version 2)
Quarter: 2013Q2

REPORT INFORMATION
  Report Type: Spontaneous
  Country: AR (occurrence: AR)
  Receive Date: 20130314
  Receipt Date: 20130405
  Transmission Date: 20140414
  Serious: Yes (Other)
  Sender: FDA-Public Use
  Company Number: AR-PFIZER INC-2013081636

PATIENT
  Age: 22 Month
  Sex: Male

DRUGS (3)
  1. GENOTROPIN [Suspect]
     Indication: GROWTH HORMONE DEFICIENCY
     Dosage: 0.1 TO 0.5 MG 6X/WEEK
     Route: 058
     Dates: start: 20121004
  2. HYDROCORTISONE [Concomitant]
  3. LEVOTHYROXINE [Concomitant]

REACTIONS (3)
  - Allergy to arthropod sting [Recovered/Resolved]
  - Dyspnoea [Recovered/Resolved]
  - Swelling [Recovered/Resolved]
